FAERS Safety Report 9101013 (Version 2)
Quarter: 2013Q1

REPORT INFORMATION
  Report Type: Spontaneous
  Country: ES (occurrence: ES)
  Receive Date: 20130215
  Receipt Date: 20130219
  Transmission Date: 20140127
  Serious: Yes (Hospitalization, Other)
  Sender: FDA-Public Use
  Company Number: ES-ROCHE-1191641

PATIENT
  Sex: Female

DRUGS (11)
  1. XOLAIR [Suspect]
     Indication: ASTHMA
     Route: 065
     Dates: start: 20110614
  2. ATROVENT [Concomitant]
  3. VENTOLINE [Concomitant]
  4. DAFLON (SPAIN) [Concomitant]
  5. TRANGOREX [Concomitant]
  6. SINGULAIR [Concomitant]
  7. ENALAPRIL [Concomitant]
  8. FUROSEMIDE [Concomitant]
  9. SINTROM [Concomitant]
  10. ANASTROZOL [Concomitant]
  11. DORZOLAMIDA [Concomitant]

REACTIONS (2)
  - Breast cancer recurrent [Unknown]
  - Colon cancer [Unknown]
